FAERS Safety Report 12245514 (Version 1)
Quarter: 2016Q2

REPORT INFORMATION
  Report Type: Spontaneous
  Country: US (occurrence: None)
  Receive Date: 20160406
  Receipt Date: 20160406
  Transmission Date: 20160815
  Serious: Yes (Other)
  Sender: FDA-Public Use
  Company Number: None

PATIENT
  Age: 55 Year
  Sex: Male
  Weight: 140.16 kg

DRUGS (2)
  1. MEROPENEM 1GM VIAL HOSPIRA [Suspect]
     Active Substance: MEROPENEM
     Indication: CELLULITIS
     Route: 042
  2. SODIUM CHLORIDE. [Suspect]
     Active Substance: SODIUM CHLORIDE
     Indication: CELLULITIS
     Route: 042

REACTIONS (4)
  - Lip swelling [None]
  - Drug hypersensitivity [None]
  - Rash [None]
  - Throat irritation [None]

NARRATIVE: CASE EVENT DATE: 20160403
